FAERS Safety Report 16898000 (Version 1)
Quarter: 2019Q4

REPORT INFORMATION
  Report Type: Spontaneous
  Country: US (occurrence: US)
  Receive Date: 20191009
  Receipt Date: 20191009
  Transmission Date: 20200122
  Serious: Yes (Other)
  Sender: FDA-Public Use
  Company Number: US-PFIZER INC-2019224764

PATIENT
  Age: 39 Year

DRUGS (1)
  1. RAPAMUNE [Suspect]
     Active Substance: SIROLIMUS
     Indication: KIDNEY TRANSPLANT REJECTION
     Dosage: 1 MG, ALTERNATE DAY [ONE TAB PO Q MON , WED , FRI AND TWO TAB PO Q TUES , THURS , SAT , SUN]
     Route: 048

REACTIONS (2)
  - Off label use [Unknown]
  - Blindness [Unknown]
